FAERS Safety Report 9493902 (Version 3)
Quarter: 2013Q4

REPORT INFORMATION
  Report Type: Spontaneous
  Country: CA (occurrence: CA)
  Receive Date: 20130903
  Receipt Date: 20131011
  Transmission Date: 20140711
  Serious: Yes (Other)
  Sender: FDA-Public Use
  Company Number: CA-AMGEN-CANSP2013061409

PATIENT
  Age: 72 Year
  Sex: Female
  Weight: 53.97 kg

DRUGS (3)
  1. PROLIA [Suspect]
     Indication: OSTEOPOROSIS POSTMENOPAUSAL
     Dosage: 60 MG, UNK
     Route: 065
     Dates: start: 20121128
  2. ELTROXIN [Concomitant]
     Route: 048
  3. LIPITOR [Concomitant]
     Dosage: 20 UNK, UNK
     Route: 048

REACTIONS (1)
  - Vaginal cancer stage II [Unknown]
